FAERS Safety Report 17586364 (Version 3)
Quarter: 2020Q3

REPORT INFORMATION
  Report Type: Report from Study
  Country: JP (occurrence: JP)
  Receive Date: 20200326
  Receipt Date: 20200508
  Transmission Date: 20201104
  Serious: Yes (Hospitalization)
  Sender: FDA-Public Use
  Company Number: NVSC2020JP083892

PATIENT
  Age: 69 Year
  Sex: Female
  Weight: 53.3 kg

DRUGS (16)
  1. PIRENOXINE [Concomitant]
     Active Substance: PIRENOXINE
     Indication: CATARACT
     Dosage: UNK
     Route: 065
     Dates: start: 20150101
  2. CANDESARTAN CILEXETIL. [Concomitant]
     Active Substance: CANDESARTAN CILEXETIL
     Indication: HYPERTENSION
     Dosage: UNK
     Route: 065
     Dates: start: 20130101
  3. DENOTAS [Concomitant]
     Active Substance: CALCIUM CARBONATE\CHOLECALCIFEROL\MAGNESIUM CARBONATE
     Indication: PROPHYLAXIS
     Dosage: UNK
     Route: 065
     Dates: start: 20180928, end: 20190212
  4. ONETRAM [Concomitant]
     Active Substance: TRAMADOL HYDROCHLORIDE
     Indication: CANCER PAIN
     Dosage: UNK
     Route: 065
     Dates: start: 20181129
  5. LAG525 [Suspect]
     Active Substance: IERAMILIMAB
     Indication: BREAST CANCER
     Dosage: 400 MG, Q3W
     Route: 042
     Dates: start: 20190116, end: 20190206
  6. LOSARTAN POTASSIUM. [Concomitant]
     Active Substance: LOSARTAN POTASSIUM
     Indication: HYPERTENSION
     Dosage: UNK
     Route: 065
     Dates: start: 20190224
  7. COMPARATOR CARBOPLATIN [Suspect]
     Active Substance: CARBOPLATIN
     Indication: BREAST CANCER
     Dosage: 0 MG, Q3W
     Route: 042
     Dates: start: 20190116, end: 20190206
  8. AMLODIPINE BESILATE [Concomitant]
     Active Substance: AMLODIPINE BESYLATE
     Indication: HYPERTENSION
     Dosage: UNK
     Route: 065
     Dates: start: 20130101
  9. LEVOCABASTINE HYDROCHLORIDE [Concomitant]
     Active Substance: LEVOCABASTINE HYDROCHLORIDE
     Dosage: UNK
     Route: 065
     Dates: start: 20150101
  10. FAMOTIDINE. [Concomitant]
     Active Substance: FAMOTIDINE
     Indication: PROPHYLAXIS
     Dosage: UNK
     Route: 065
     Dates: start: 20180928
  11. ALFACALCIDOL [Concomitant]
     Active Substance: ALFACALCIDOL
     Indication: HYPOCALCAEMIA
     Dosage: UNK
     Route: 065
     Dates: start: 20190212
  12. CALCIUM LACTATE [Concomitant]
     Active Substance: CALCIUM LACTATE
     Indication: HYPOCALCAEMIA
     Dosage: UNK
     Route: 065
     Dates: start: 20190212
  13. REBAMIPIDE [Concomitant]
     Active Substance: REBAMIPIDE
     Indication: PROPHYLAXIS
     Dosage: UNK
     Route: 065
     Dates: start: 20180928
  14. PDR001 [Suspect]
     Active Substance: SPARTALIZUMAB
     Indication: BREAST CANCER
     Dosage: 300 MG, Q3W
     Route: 042
     Dates: start: 20190116, end: 20190206
  15. RANMARK [Concomitant]
     Active Substance: DENOSUMAB
     Indication: METASTASES TO BONE
     Dosage: UNK
     Route: 058
     Dates: start: 20180927
  16. LOXOPROFEN SODIUM HYDRATE [Concomitant]
     Active Substance: LOXOPROFEN SODIUM DIHYDRATE
     Indication: CANCER PAIN
     Dosage: UNK
     Route: 065
     Dates: start: 20180912

REACTIONS (1)
  - Pleural effusion [Recovered/Resolved]

NARRATIVE: CASE EVENT DATE: 20190226
